FAERS Safety Report 18583934 (Version 1)
Quarter: 2020Q4

REPORT INFORMATION
  Report Type: Spontaneous
  Country: AU (occurrence: AU)
  Receive Date: 20201207
  Receipt Date: 20201207
  Transmission Date: 20210114
  Serious: Yes (Other)
  Sender: FDA-Public Use
  Company Number: AU-ALKEM LABORATORIES LIMITED-AU-ALKEM-2020-03051

PATIENT
  Age: 26 Year
  Sex: Male

DRUGS (2)
  1. ZUCLOPENTHIXOL [Suspect]
     Active Substance: ZUCLOPENTHIXOL
     Indication: PRODUCT USED FOR UNKNOWN INDICATION
     Dosage: UNK
     Route: 065
  2. OLANZAPINE. [Suspect]
     Active Substance: OLANZAPINE
     Indication: PRODUCT USED FOR UNKNOWN INDICATION
     Dosage: UNK
     Route: 065

REACTIONS (8)
  - Abnormal behaviour [Unknown]
  - Depression [Unknown]
  - Panic reaction [Unknown]
  - Restless legs syndrome [Unknown]
  - Agitation [Unknown]
  - Anxiety [Unknown]
  - Suicidal ideation [Unknown]
  - Mania [Unknown]
